FAERS Safety Report 8379675-0 (Version None)
Quarter: 2012Q2

REPORT INFORMATION
  Report Type: 
  Country: None (occurrence: None)
  Receive Date: 20120523
  Receipt Date: 20120515
  Transmission Date: 20120825
  Serious: Yes (Hospitalization)
  Sender: FDA-Public Use
  Company Number: US-ASTELLAS-2012US004079

PATIENT
  Sex: Female

DRUGS (2)
  1. ERLOTINIB HYDROCHLORIDE [Suspect]
     Indication: METASTASES TO LUNG
     Dosage: 150 MG, UID/QD
     Route: 048
     Dates: start: 20120327
  2. ERLOTINIB HYDROCHLORIDE [Suspect]
     Dosage: UNK
     Route: 048
     Dates: start: 20120420

REACTIONS (4)
  - CHEST PAIN [None]
  - BLOOD POTASSIUM DECREASED [None]
  - VOMITING [None]
  - DIARRHOEA [None]
